FAERS Safety Report 18610839 (Version 1)
Quarter: 2020Q4

REPORT INFORMATION
  Report Type: Spontaneous
  Country: US (occurrence: US)
  Receive Date: 20201212
  Receipt Date: 20201212
  Transmission Date: 20210114
  Serious: Yes (Other)
  Sender: FDA-Public Use
  Company Number: None

PATIENT
  Age: 68 Year
  Sex: Male
  Weight: 73.8 kg

DRUGS (22)
  1. FAMOTIDINE. [Concomitant]
     Active Substance: FAMOTIDINE
     Dates: start: 20200928, end: 20201003
  2. FENFIBRATE [Concomitant]
     Dates: start: 20200928, end: 20200929
  3. CAPHOSOL [Concomitant]
     Active Substance: CALCIUM CHLORIDE\SODIUM CHLORIDE\SODIUM PHOSPHATE, DIBASIC, ANHYDROUS\SODIUM PHOSPHATE, MONOBASIC, ANHYDROUS
     Dates: start: 20200928, end: 20201104
  4. GRANIX [Concomitant]
     Active Substance: TBO-FILGRASTIM
     Dates: start: 20201003, end: 20201109
  5. LORAZEPAM. [Concomitant]
     Active Substance: LORAZEPAM
     Dates: start: 20201004, end: 20201106
  6. VALACYCLOVIR [Concomitant]
     Active Substance: VALACYCLOVIR HYDROCHLORIDE
     Dates: start: 20200928, end: 20201113
  7. FLUCONAZOLE. [Concomitant]
     Active Substance: FLUCONAZOLE
     Dates: start: 20200928, end: 20201110
  8. OXYCODONE IR [Concomitant]
     Active Substance: OXYCODONE
     Dates: start: 20201012, end: 20201113
  9. POTASSIUM [Concomitant]
     Active Substance: POTASSIUM
     Dates: start: 20201010, end: 20201106
  10. FLOMAX [Concomitant]
     Active Substance: TAMSULOSIN HYDROCHLORIDE
     Dates: start: 20200928, end: 20201113
  11. ALLOPURINOL. [Concomitant]
     Active Substance: ALLOPURINOL
     Dates: start: 20200928, end: 20201003
  12. FUROSEMIDE. [Concomitant]
     Active Substance: FUROSEMIDE
     Dates: start: 20201015, end: 20201028
  13. INSULIN [Concomitant]
     Active Substance: INSULIN NOS
     Dates: start: 20200928, end: 20201113
  14. ZOSYN [Concomitant]
     Active Substance: PIPERACILLIN SODIUM\TAZOBACTAM SODIUM
     Dates: start: 20201028, end: 20201029
  15. BACTRIM [Concomitant]
     Active Substance: SULFAMETHOXAZOLE\TRIMETHOPRIM
     Dates: start: 20201026, end: 20201113
  16. BREXUCABTAGENE AUTOLEUCEL. [Suspect]
     Active Substance: BREXUCABTAGENE AUTOLEUCEL
     Indication: MANTLE CELL LYMPHOMA
     Route: 041
     Dates: start: 20200928, end: 20200928
  17. ACYCLOVIR. [Concomitant]
     Active Substance: ACYCLOVIR
     Dates: start: 20201004, end: 20201015
  18. MAGNESIUM [Concomitant]
     Active Substance: MAGNESIUM
     Dates: start: 20201012, end: 20201113
  19. ONDANSETRON [Concomitant]
     Active Substance: ONDANSETRON
     Dates: start: 20200928, end: 20201010
  20. PANTOPRAZOLE [Concomitant]
     Active Substance: PANTOPRAZOLE
     Dates: start: 20201004, end: 20201113
  21. METOPROLOL. [Concomitant]
     Active Substance: METOPROLOL
     Dates: start: 20200928, end: 20201113
  22. PYRIDIUM [Concomitant]
     Active Substance: PHENAZOPYRIDINE
     Dates: start: 20201002, end: 20201018

REACTIONS (2)
  - Cytokine release syndrome [None]
  - Neurotoxicity [None]

NARRATIVE: CASE EVENT DATE: 20200929
